FAERS Safety Report 12683975 (Version 2)
Quarter: 2016Q3

REPORT INFORMATION
  Report Type: Spontaneous
  Country: US (occurrence: US)
  Receive Date: 20160825
  Receipt Date: 20160919
  Transmission Date: 20161109
  Serious: Yes (Hospitalization, Other)
  Sender: FDA-Public Use
  Company Number: US-PFIZER INC-2016398331

PATIENT
  Age: 78 Year
  Sex: Female

DRUGS (15)
  1. CITRATE [Concomitant]
     Active Substance: CITRIC ACID MONOHYDRATE
     Dosage: 1400 MG (EVERY PM)
  2. AROMASIN [Suspect]
     Active Substance: EXEMESTANE
     Dosage: 25 MG, 1X/DAY (1 AM)
  3. CORRECTOL NOS [Concomitant]
     Active Substance: BISACODYL OR DOCUSATE SODIUM
     Indication: LAXATIVE SUPPORTIVE CARE
     Dosage: 5 MG, 1X/DAY (PM)
  4. VITAMIN D3 [Concomitant]
     Active Substance: CHOLECALCIFEROL
     Dosage: EVERY PM
  5. ALPRAZOLAM. [Concomitant]
     Active Substance: ALPRAZOLAM
     Indication: NERVOUS SYSTEM DISORDER
     Dosage: 0.5 MG, 2X/DAY (1 AM + 1 PM)
  6. TYLENOL [Concomitant]
     Active Substance: ACETAMINOPHEN
     Indication: PAIN
     Dosage: 650 MG, TWICE A DAY AS NEEDED (2 AM-2 PM)
  7. FAMOTIDINE. [Concomitant]
     Active Substance: FAMOTIDINE
     Indication: ACIDOSIS
     Dosage: 20 MG, AS NEEDED (1 OR 2)
  8. LOVASTATIN. [Concomitant]
     Active Substance: LOVASTATIN
     Indication: BLOOD CHOLESTEROL ABNORMAL
     Dosage: 20 MG, 1X/DAY (PM)
  9. CHLOR [Concomitant]
     Indication: HYPERSENSITIVITY
     Dosage: 4 MG, EVERY 4 HOURS
  10. STOOL SOFTENER [Concomitant]
     Active Substance: DOCUSATE CALCIUM
     Indication: LAXATIVE SUPPORTIVE CARE
     Dosage: 2 DF, UNK
  11. PROMETHAZINE [Concomitant]
     Active Substance: PROMETHAZINE\PROMETHAZINE HYDROCHLORIDE
     Indication: NAUSEA
     Dosage: 2.5 MG, AS NEEDED
  12. AMOXICILLIN. [Concomitant]
     Active Substance: AMOXICILLIN
     Indication: KIDNEY INFECTION
     Dosage: UNK UNK, AS NEEDED (500 EVERY 8 HOURS)
  13. PRUNE [Concomitant]
     Active Substance: PRUNE
     Indication: LAXATIVE SUPPORTIVE CARE
     Dosage: 16 OZ EVERY AM AS NEEDED
  14. DICYCLOMINE [Concomitant]
     Active Substance: DICYCLOMINE HYDROCHLORIDE
     Dosage: 10 MG, TWICE A DAY (10 MG 1 AM +1 PM)
  15. ASPIRIN. [Concomitant]
     Active Substance: ASPIRIN
     Dosage: UNK, 1X/DAY (AM EVERY DAY)

REACTIONS (5)
  - Loss of consciousness [Not Recovered/Not Resolved]
  - Hypertension [Not Recovered/Not Resolved]
  - Facial paralysis [Not Recovered/Not Resolved]
  - Head injury [Not Recovered/Not Resolved]
  - Fall [Not Recovered/Not Resolved]
